FAERS Safety Report 7354394-8 (Version None)
Quarter: 2011Q1

REPORT INFORMATION
  Report Type: 
  Country: None (occurrence: None)
  Receive Date: 20110316
  Receipt Date: 20110301
  Transmission Date: 20110831
  Serious: Yes (Disabling, Other)
  Sender: FDA-Public Use
  Company Number: PHHY2010US83552

PATIENT
  Sex: Female

DRUGS (33)
  1. RECLAST [Suspect]
     Indication: OSTEOPOROSIS
     Dosage: UNK
     Route: 042
     Dates: start: 20101126
  2. METANX [Concomitant]
     Dosage: UNK
     Dates: start: 20110120
  3. KLONOPIN [Concomitant]
     Dosage: 1 MG,
     Route: 048
     Dates: start: 20100228
  4. VOLTAREN                           /00372303/ [Concomitant]
     Dosage: UNK
     Dates: start: 20101111
  5. BYETTA [Concomitant]
     Dosage: 5 MCG, TWICE A DAY
     Dates: start: 20110217
  6. ZOFRAN [Concomitant]
     Dosage: 8 MG,
     Route: 048
     Dates: start: 20101213
  7. MOMETASONE FUROATE [Concomitant]
     Dosage: UNK
     Dates: start: 20101110
  8. BENADRYL [Concomitant]
  9. ZYPREXA [Concomitant]
     Dosage: UNK
     Route: 048
     Dates: start: 20110120
  10. MORPHINE [Suspect]
     Indication: ARTHRITIS
  11. LIDOCAINE [Concomitant]
     Indication: MOUTH ULCERATION
  12. TRILEPTAL [Concomitant]
     Dosage: 300 MG,
     Route: 048
     Dates: start: 20110201
  13. OMEPRAZOLE [Concomitant]
     Dosage: UNK
     Route: 048
     Dates: start: 20101129
  14. INSULIN GLARGINE [Concomitant]
     Dosage: 100 U/ML,
  15. GLUCOPHAGE [Concomitant]
     Dosage: 500 MG,
     Route: 048
     Dates: start: 20101110
  16. MAALOX [Concomitant]
     Indication: MOUTH ULCERATION
  17. CYMBALTA [Concomitant]
     Dosage: 30 MG, DAILY
     Route: 048
     Dates: start: 20101110
  18. LEVOTHYROXINE [Concomitant]
     Route: 048
  19. ADVAIR DISKUS 100/50 [Concomitant]
     Dosage: UNK
     Route: 048
     Dates: start: 20101110
  20. VITAMIN D [Concomitant]
     Dosage: 400 U,
     Route: 048
  21. LUNESTA [Concomitant]
     Dosage: 3 MG,
     Route: 048
     Dates: start: 20110217
  22. FUROSEMIDE [Concomitant]
     Dosage: 20 MG,
     Route: 048
  23. VERAPAMIL [Concomitant]
     Dosage: 120 MG,
     Route: 048
     Dates: start: 20101110
  24. BUTALBITAL, ASPIRIN, AND CAFFEINE [Concomitant]
     Dosage: THREE TIMES DAILY
     Route: 048
     Dates: start: 20110210
  25. ROSUVASTATIN [Concomitant]
     Dosage: 10 MG,
     Route: 048
  26. ANASTROZOLE [Concomitant]
     Dosage: 1 MG,
     Route: 048
     Dates: start: 20041103
  27. LOTRISONE [Concomitant]
     Dosage: 0.05 %,
     Dates: start: 20110222
  28. COUMADIN [Concomitant]
     Dosage: 5 MG,
     Route: 048
  29. POTASSIUM CHLORIDE [Concomitant]
     Dosage: 10 MEQ,
     Route: 048
     Dates: start: 20101208
  30. OXYBUTYNIN [Concomitant]
     Dosage: 5 MG,
     Route: 048
     Dates: start: 20101110
  31. LOSARTAN [Concomitant]
     Dosage: 100 MG,
     Route: 048
     Dates: start: 20101110
  32. LOVENOX [Concomitant]
     Dosage: UNK
     Dates: start: 20101025
  33. ALBUTEROL [Concomitant]
     Dosage: UNK
     Route: 048
     Dates: start: 20081002

REACTIONS (16)
  - ORAL HERPES [None]
  - APHASIA [None]
  - ARTHRALGIA [None]
  - MYALGIA [None]
  - ORAL PAIN [None]
  - PAIN [None]
  - CHILLS [None]
  - MASTICATION DISORDER [None]
  - JOINT SWELLING [None]
  - BURNING SENSATION [None]
  - PYREXIA [None]
  - PRURITUS [None]
  - PAINFUL RESPIRATION [None]
  - MOUTH ULCERATION [None]
  - INFLUENZA [None]
  - GAIT DISTURBANCE [None]
